FAERS Safety Report 9024278 (Version 1)
Quarter: 2013Q1

REPORT INFORMATION
  Report Type: Spontaneous
  Country: US (occurrence: US)
  Receive Date: 20130121
  Receipt Date: 20130121
  Transmission Date: 20140127
  Serious: Yes (Death)
  Sender: FDA-Public Use
  Company Number: PHEH2013US001621

PATIENT
  Age: 60 None
  Sex: Male

DRUGS (8)
  1. ZOMETA [Suspect]
  2. VOTRIENT [Suspect]
     Indication: RENAL CELL CARCINOMA
     Dosage: 600 MG, UNK
     Route: 048
     Dates: start: 201203
  3. WARFARIN SODIUM [Concomitant]
  4. CHOLECALCIFEROL [Concomitant]
  5. DOCUSATE [Concomitant]
  6. POLYETHYLENE GLYCOL [Concomitant]
  7. VICODIN [Concomitant]
  8. FENTANYL [Concomitant]

REACTIONS (1)
  - Death [Fatal]
